FAERS Safety Report 5214892-X (Version None)
Quarter: 2007Q1

REPORT INFORMATION
  Report Type: 
  Country: None (occurrence: None)
  Receive Date: 20061108
  Receipt Date: 20050922
  Transmission Date: 20070707
  Serious: Yes (Other)
  Sender: FDA-Public Use
  Company Number: PHEH2005US10533

PATIENT
  Sex: Female

DRUGS (6)
  1. ESTRADERM [Suspect]
  2. ESTRADIOL [Suspect]
  3. PROVERA [Suspect]
  4. MEDROXYPROGESTERONE [Suspect]
  5. PREMARIN [Concomitant]
  6. CONJUGATED ESTROGENS [Suspect]

REACTIONS (7)
  - BIOPSY BREAST [None]
  - BREAST CANCER [None]
  - BREAST LUMP REMOVAL [None]
  - EMOTIONAL DISORDER [None]
  - MASTECTOMY [None]
  - PHYSICAL DISABILITY [None]
  - SCAR [None]
